FAERS Safety Report 15027427 (Version 2)
Quarter: 2018Q2

REPORT INFORMATION
  Report Type: Report from Study
  Country: US (occurrence: US)
  Receive Date: 20180619
  Receipt Date: 20180621
  Transmission Date: 20180711
  Serious: No
  Sender: FDA-Public Use
  Company Number: US-ROCHE-2142143

PATIENT
  Sex: Female

DRUGS (1)
  1. OCREVUS [Suspect]
     Active Substance: OCRELIZUMAB
     Indication: MULTIPLE SCLEROSIS
     Dosage: FULL DOSE?DAY 1 AND DAY 15 FULL DOSE
     Route: 065
     Dates: start: 20180611

REACTIONS (2)
  - Fatigue [Unknown]
  - Urinary tract infection [Unknown]
